FAERS Safety Report 5641661-9 (Version None)
Quarter: 2008Q1

REPORT INFORMATION
  Report Type: 
  Country: None (occurrence: None)
  Receive Date: 20080227
  Receipt Date: 20080218
  Transmission Date: 20080703
  Serious: Yes (Hospitalization, Other)
  Sender: FDA-Public Use
  Company Number: PHEH2006US03539

PATIENT
  Age: 64 Year
  Sex: Female
  Weight: 78.911 kg

DRUGS (9)
  1. ZOMETA [Suspect]
     Indication: METASTASES TO BONE
     Dosage: UNK, UNK
     Dates: start: 20040101, end: 20050826
  2. AREDIA [Suspect]
     Indication: METASTASES TO BONE
     Dosage: 90 MG, QMO
     Route: 042
     Dates: start: 20040101
  3. PRINIVIL [Concomitant]
     Dosage: 20 MG, QD
     Route: 048
  4. LITHIUM CARBONATE [Concomitant]
     Dosage: 300 MG, TID
     Route: 048
  5. LOXAPINE [Concomitant]
     Dosage: 20 MG, QD
     Route: 048
  6. ATENOLOL [Concomitant]
     Dosage: 10 MG, QD
     Route: 048
  7. VITAMIN CAP [Concomitant]
  8. GINKGO BILOBA [Concomitant]
  9. XELODA [Concomitant]
     Indication: BREAST CANCER

REACTIONS (22)
  - ANXIETY [None]
  - BLOOD FOLLICLE STIMULATING HORMONE DECREASED [None]
  - BLOOD PROLACTIN INCREASED [None]
  - BLOOD THYROID STIMULATING HORMONE INCREASED [None]
  - BONE DISORDER [None]
  - CONFUSIONAL STATE [None]
  - DELIRIUM [None]
  - DENTAL CARIES [None]
  - HALLUCINATION [None]
  - HYPOTHALAMO-PITUITARY DISORDER [None]
  - INJURY [None]
  - JAW DISORDER [None]
  - MASTICATION DISORDER [None]
  - MENTAL STATUS CHANGES [None]
  - METASTASES TO MENINGES [None]
  - MOUTH ULCERATION [None]
  - ORAL INFECTION [None]
  - OSTEOLYSIS [None]
  - OSTEONECROSIS [None]
  - PAIN [None]
  - PURULENT DISCHARGE [None]
  - SWELLING [None]
